FAERS Safety Report 6897125-8 (Version None)
Quarter: 2010Q3

REPORT INFORMATION
  Report Type: 
  Country: None (occurrence: None)
  Receive Date: 20100802
  Receipt Date: 20070331
  Transmission Date: 20110219
  Serious: No
  Sender: FDA-Public Use
  Company Number: US-PFIZER INC-2007026961

PATIENT
  Sex: Male
  Weight: 99.8 kg

DRUGS (9)
  1. LYRICA [Suspect]
     Indication: NEURALGIA
     Dates: start: 20070101
  2. PERCOCET [Concomitant]
     Indication: BACK PAIN
     Dates: start: 20070101
  3. HYDROCHLOROTHIAZIDE [Concomitant]
     Indication: BLOOD PRESSURE ABNORMAL
  4. LISINOPRIL [Concomitant]
  5. SYNTHROID [Concomitant]
  6. ALL OTHER THERAPEUTIC PRODUCTS [Concomitant]
  7. PEPCID [Concomitant]
  8. ZELNORM [Concomitant]
  9. ADVIL LIQUI-GELS [Concomitant]
     Indication: ARTHRITIS

REACTIONS (1)
  - BACK PAIN [None]
